FAERS Safety Report 21273917 (Version 3)
Quarter: 2022Q4

REPORT INFORMATION
  Report Type: Spontaneous
  Country: US (occurrence: US)
  Receive Date: 20220831
  Receipt Date: 20221102
  Transmission Date: 20230112
  Serious: No
  Sender: FDA-Public Use
  Company Number: US-BIOGEN-2022BI01142327

PATIENT
  Age: 43 Year
  Sex: Female

DRUGS (1)
  1. TYSABRI [Suspect]
     Active Substance: NATALIZUMAB
     Indication: Multiple sclerosis
     Route: 050
     Dates: start: 20220721, end: 20220721

REACTIONS (5)
  - Prescribed underdose [Recovered/Resolved]
  - Multiple sclerosis [Not Recovered/Not Resolved]
  - Dysarthria [Unknown]
  - Clumsiness [Unknown]
  - Somnolence [Unknown]

NARRATIVE: CASE EVENT DATE: 20220721
